FAERS Safety Report 8732488 (Version 2)
Quarter: 2013Q3

REPORT INFORMATION
  Report Type: Report from Study
  Country: US (occurrence: US)
  Receive Date: 20120820
  Receipt Date: 20130830
  Transmission Date: 20140515
  Serious: Yes (Life-Threatening, Other)
  Sender: FDA-Public Use
  Company Number: PHEH2012US016032

PATIENT
  Sex: Female

DRUGS (4)
  1. GLEEVEC [Suspect]
     Dosage: 400 MG, QD
     Route: 048
  2. GLEEVEC [Interacting]
     Dosage: 400 MG, QD
     Route: 048
     Dates: start: 20120701, end: 20120815
  3. DEPAKOTE [Interacting]
     Dosage: UNK
     Dates: start: 199909, end: 2011
  4. DEPAKOTE [Interacting]
     Dosage: UNK UKN, UNK
     Dates: start: 2012

REACTIONS (9)
  - Panic attack [Unknown]
  - Dyspnoea [Unknown]
  - Tremor [Unknown]
  - Anxiety [Unknown]
  - Agitation [Unknown]
  - Suicidal ideation [Unknown]
  - Gastrointestinal stromal tumour [Unknown]
  - Deafness [Unknown]
  - Drug interaction [Unknown]
